FAERS Safety Report 18992588 (Version 1)
Quarter: 2021Q1

REPORT INFORMATION
  Report Type: Spontaneous
  Country: US (occurrence: US)
  Receive Date: 20210310
  Receipt Date: 20210310
  Transmission Date: 20210420
  Serious: No
  Sender: FDA-Public Use
  Company Number: US-ASTRAZENECA-2021A098985

PATIENT
  Age: 49 Year
  Sex: Male
  Weight: 115.7 kg

DRUGS (5)
  1. METROPOLOL SUCCINATE [Suspect]
     Active Substance: METOPROLOL SUCCINATE
     Indication: ACUTE MYOCARDIAL INFARCTION
     Dosage: UNKNOWN
     Route: 048
  2. METROPOLOL SUCCINATE [Suspect]
     Active Substance: METOPROLOL SUCCINATE
     Indication: MYOCARDIAL INFARCTION
     Dosage: UNKNOWN
     Route: 048
  3. BRILINTA [Suspect]
     Active Substance: TICAGRELOR
     Indication: ACUTE MYOCARDIAL INFARCTION
     Dosage: 90MG ONCE OR TWICE A DAY
     Route: 048
     Dates: end: 202009
  4. BRILINTA [Suspect]
     Active Substance: TICAGRELOR
     Indication: MYOCARDIAL INFARCTION
     Dosage: 90MG ONCE OR TWICE A DAY
     Route: 048
     Dates: end: 202009
  5. ASPIRIN. [Concomitant]
     Active Substance: ASPIRIN

REACTIONS (10)
  - Dry mouth [Unknown]
  - Constipation [Unknown]
  - Fatigue [Unknown]
  - Oropharyngeal pain [Unknown]
  - Feeling cold [Unknown]
  - Blood disorder [Unknown]
  - Anxiety [Unknown]
  - Stress [Unknown]
  - Illness [Unknown]
  - Depression [Unknown]
